FAERS Safety Report 4880334-7 (Version None)
Quarter: 2006Q1

REPORT INFORMATION
  Report Type: 
  Country: None (occurrence: None)
  Receive Date: 20060111
  Receipt Date: 20051230
  Transmission Date: 20060701
  Serious: Yes (Hospitalization)
  Sender: FDA-Public Use
  Company Number: 2005173212

PATIENT
  Age: 71 Year
  Sex: Male
  Weight: 80 kg

DRUGS (20)
  1. IRINOTECAN HCL [Suspect]
     Indication: SMALL CELL LUNG CANCER STAGE UNSPECIFIED
     Dosage: 100 MG/M2 (CYCLICAL), INTRAVENOUS
     Route: 042
     Dates: start: 20051021, end: 20051216
  2. NEUPOGEN [Suspect]
     Indication: ILL-DEFINED DISORDER
     Dosage: 300 MCG, SUBCUTANEOUS
     Route: 058
     Dates: start: 20051022
  3. MULTIVITAMIN [Concomitant]
  4. VITAMIN C (VITAMIN C) [Concomitant]
  5. VITAMIN B12 [Concomitant]
  6. PRIMATENE MIST [Concomitant]
  7. ALEVE [Concomitant]
  8. EXCEDRIN (ACETYLSALICYLIC ACID, CAFFEINE, PARACETAMOL, SALICYLAMIDE) [Concomitant]
  9. DECADRON [Concomitant]
  10. ZOFRAN [Concomitant]
  11. MAGNESIUM (MAGNESIUM) [Concomitant]
  12. LOPERAMIDE HCL [Concomitant]
  13. AVAPRO [Concomitant]
  14. ALBUTEROL [Concomitant]
  15. CLONIDINE [Concomitant]
  16. NIFEDIPINE [Concomitant]
  17. MAGNESIUM SULFATE [Concomitant]
  18. PROCRIT [Concomitant]
  19. AUGMENTIN '125' [Concomitant]
  20. K-DUR 10 [Concomitant]

REACTIONS (7)
  - ANAEMIA [None]
  - DYSPNOEA [None]
  - FATIGUE [None]
  - FEBRILE NEUTROPENIA [None]
  - HYPOMAGNESAEMIA [None]
  - PNEUMONIA [None]
  - THROMBOCYTOPENIA [None]
